FAERS Safety Report 19064060 (Version 1)
Quarter: 2021Q1

REPORT INFORMATION
  Report Type: Spontaneous
  Country: DE (occurrence: DE)
  Receive Date: 20210326
  Receipt Date: 20210326
  Transmission Date: 20210420
  Serious: Yes (Hospitalization, Other)
  Sender: FDA-Public Use
  Company Number: DE-AMGEN-DEUSP2021038678

PATIENT
  Age: 54 Year
  Sex: Female

DRUGS (13)
  1. VALSARTAN. [Concomitant]
     Active Substance: VALSARTAN
     Indication: HYPERTENSION
     Dosage: 80 MILLIGRAM, QD
  2. CALCIUM [Concomitant]
     Active Substance: CALCIUM
     Dosage: 2?2?2
  3. PERTUZUMAB. [Concomitant]
     Active Substance: PERTUZUMAB
  4. VITAMIN D3 [Concomitant]
     Active Substance: CHOLECALCIFEROL
     Dosage: 20000 IE, QWK
  5. ATORVASTATIN [Concomitant]
     Active Substance: ATORVASTATIN
     Indication: HYPERCHOLESTEROLAEMIA
     Dosage: 10 MILLIGRAM, QD
  6. EUTHYROX [Concomitant]
     Active Substance: LEVOTHYROXINE SODIUM
     Indication: HYPOTHYROIDISM
     Dosage: 50 MILLIGRAM, QD
  7. AMLODIPINE [Concomitant]
     Active Substance: AMLODIPINE BESYLATE
     Indication: HYPERTENSION
     Dosage: 5 MILLIGRAM, QD
  8. KANJINTI [Suspect]
     Active Substance: TRASTUZUMAB-ANNS
     Indication: BREAST CANCER
     Dosage: UNK
     Route: 065
  9. KANJINTI [Suspect]
     Active Substance: TRASTUZUMAB-ANNS
     Dosage: UNK
     Route: 065
  10. DOCETAXEL. [Concomitant]
     Active Substance: DOCETAXEL
     Dosage: UNK
  11. CARBOPLATIN. [Concomitant]
     Active Substance: CARBOPLATIN
  12. FLUTICASONE;FORMOTEROL [Concomitant]
     Active Substance: FLUTICASONE\FORMOTEROL
     Indication: ASTHMA
     Dosage: 20/250, 2 INHALE 1?0?0
  13. MAGNESIUM [Concomitant]
     Active Substance: MAGNESIUM
     Dosage: UNK UNK, QD

REACTIONS (6)
  - Infection [Unknown]
  - Off label use [Unknown]
  - Bicytopenia [Unknown]
  - Prerenal failure [Unknown]
  - Diarrhoea [Unknown]
  - Herpes zoster [Unknown]

NARRATIVE: CASE EVENT DATE: 202011
